FAERS Safety Report 4949195-1 (Version None)
Quarter: 2006Q1

REPORT INFORMATION
  Report Type: 
  Country: None (occurrence: None)
  Receive Date: 20060321
  Receipt Date: 20060313
  Transmission Date: 20060701
  Serious: Yes (Other)
  Sender: FDA-Public Use
  Company Number: US-SANOFI-SYNTHELABO-A03200601331

PATIENT
  Sex: Female

DRUGS (4)
  1. PLAVIX [Suspect]
     Indication: CEREBROVASCULAR ACCIDENT
     Route: 048
     Dates: start: 20060101, end: 20060217
  2. PLAVIX [Suspect]
     Route: 048
     Dates: start: 20060101, end: 20060217
  3. ASPIRIN [Concomitant]
     Route: 048
     Dates: start: 20060101
  4. ASPIRIN [Concomitant]
     Route: 048
     Dates: start: 20060101

REACTIONS (6)
  - CONTUSION [None]
  - DEHYDRATION [None]
  - IMMUNE SYSTEM DISORDER [None]
  - PALMAR ERYTHEMA [None]
  - RHEUMATOID ARTHRITIS [None]
  - URTICARIA GENERALISED [None]
